FAERS Safety Report 17286443 (Version 1)
Quarter: 2020Q1

REPORT INFORMATION
  Report Type: Report from Study
  Country: CA (occurrence: CA)
  Receive Date: 20200119
  Receipt Date: 20200119
  Transmission Date: 20200409
  Serious: Yes (Death)
  Sender: FDA-Public Use
  Company Number: CA-HLSUS-2020-CA-000068

PATIENT
  Age: 69 Year
  Sex: Male

DRUGS (1)
  1. CLOZARIL [Suspect]
     Active Substance: CLOZAPINE
     Route: 048
     Dates: start: 20151221, end: 20191230

REACTIONS (1)
  - Death [Fatal]

NARRATIVE: CASE EVENT DATE: 20191230
